FAERS Safety Report 6193538-0 (Version None)
Quarter: 2009Q2

REPORT INFORMATION
  Report Type: 
  Country: None (occurrence: None)
  Receive Date: 20090514
  Receipt Date: 20090507
  Transmission Date: 20091009
  Serious: Yes (Hospitalization)
  Sender: FDA-Public Use
  Company Number: 2009SP009932

PATIENT
  Age: 20 Year
  Sex: Male

DRUGS (1)
  1. TEMODAL [Suspect]
     Indication: GLIOMA

REACTIONS (3)
  - ALVEOLITIS ALLERGIC [None]
  - CHEST PAIN [None]
  - PNEUMONIA [None]
